FAERS Safety Report 9116436 (Version 1)
Quarter: 2013Q1

REPORT INFORMATION
  Report Type: Report from Study
  Country: GB (occurrence: GB)
  Receive Date: 20130225
  Receipt Date: 20130225
  Transmission Date: 20140127
  Serious: Yes (Hospitalization)
  Sender: FDA-Public Use
  Company Number: GB-ABBOTT-13P-167-1052646-00

PATIENT
  Age: 35 Year
  Sex: Female
  Weight: 101 kg

DRUGS (4)
  1. HUMIRA [Suspect]
     Indication: PSORIASIS
     Route: 058
     Dates: start: 20110420
  2. CO-CODAMOL [Concomitant]
     Indication: PRODUCT USED FOR UNKNOWN INDICATION
     Dates: start: 20040101
  3. METHOTREXATE [Concomitant]
     Indication: PRODUCT USED FOR UNKNOWN INDICATION
     Dates: start: 20120620, end: 20120815
  4. METHOTREXATE [Concomitant]
     Dates: start: 20120829, end: 20120923

REACTIONS (6)
  - Malaise [Recovered/Resolved]
  - Pain of skin [Recovered/Resolved]
  - Rash pustular [Recovered/Resolved]
  - Dermatitis [Recovered/Resolved]
  - Viral infection [Recovered/Resolved]
  - Headache [Recovered/Resolved]
